FAERS Safety Report 6826157-0 (Version None)
Quarter: 2010Q3

REPORT INFORMATION
  Report Type: 
  Country: None (occurrence: None)
  Receive Date: 20100709
  Receipt Date: 20100624
  Transmission Date: 20110219
  Serious: Yes (Hospitalization)
  Sender: FDA-Public Use
  Company Number: US-ELI_LILLY_AND_COMPANY-US201006001303

PATIENT
  Sex: Female
  Weight: 50.34 kg

DRUGS (6)
  1. GEMCITABINE HYDROCHLORIDE [Suspect]
     Indication: MALIGNANT PERITONEAL NEOPLASM
     Dosage: 1000 MG/M2, OTHER
     Route: 042
     Dates: start: 20090810
  2. CARBOPLATIN [Suspect]
     Indication: MALIGNANT PERITONEAL NEOPLASM
     Dosage: 3 D/F, OTHER
     Route: 042
     Dates: start: 20090810
  3. BEVACIZUMAB [Suspect]
     Indication: MALIGNANT PERITONEAL NEOPLASM
     Dosage: 10 MG/KG, OTHER
     Route: 042
     Dates: start: 20090810
  4. COLACE [Concomitant]
     Dosage: UNK, DAILY (1/D)
  5. POTASSIUM [Concomitant]
     Dosage: 20 MEQ, DAILY (1/D)
     Route: 048
  6. MAGNESIUM OXIDE [Concomitant]

REACTIONS (1)
  - DEEP VEIN THROMBOSIS [None]
